FAERS Safety Report 13790702 (Version 1)
Quarter: 2017Q3

REPORT INFORMATION
  Report Type: Spontaneous
  Country: US (occurrence: US)
  Receive Date: 20170725
  Receipt Date: 20170725
  Transmission Date: 20171127
  Serious: No
  Sender: FDA-Public Use
  Company Number: US-GALDERMA-US17001753

PATIENT
  Sex: Female

DRUGS (2)
  1. CETAPHIL MOISTURIZING LOTION (DIFFERIN BALANCING MOISTURIZER) [Suspect]
     Active Substance: COSMETICS
     Indication: PRODUCT USED FOR UNKNOWN INDICATION
     Route: 061
     Dates: start: 201703, end: 201703
  2. DIFFERIN GEL [Suspect]
     Active Substance: ADAPALENE
     Indication: ACNE
     Dosage: 0.1%
     Route: 061
     Dates: start: 20170307

REACTIONS (5)
  - Skin sensitisation [Unknown]
  - Pruritus [Unknown]
  - Dry skin [Unknown]
  - Sticky skin [Unknown]
  - Seborrhoea [Unknown]

NARRATIVE: CASE EVENT DATE: 201703
